FAERS Safety Report 7923366-4 (Version None)
Quarter: 2011Q4

REPORT INFORMATION
  Report Type: 
  Country: None (occurrence: None)
  Receive Date: 20111117
  Receipt Date: 20110202
  Transmission Date: 20120403
  Serious: No
  Sender: FDA-Public Use
  Company Number: US-AMGEN-USASP2011006307

PATIENT
  Age: 62 Year
  Sex: Female
  Weight: 43.084 kg

DRUGS (6)
  1. AMLODIPINE [Concomitant]
     Dosage: 5 MG, UNK
  2. CRESTOR [Concomitant]
     Dosage: 40 MG, UNK
  3. WARFARIN SODIUM [Concomitant]
     Dosage: 5 MG, UNK
  4. ENBREL [Suspect]
     Indication: PRODUCT USED FOR UNKNOWN INDICATION
     Dosage: 50 MG, QWK
  5. ASPIRIN [Concomitant]
     Dosage: 81 MG, UNK
  6. MULTIVITAMIN                       /00097801/ [Concomitant]

REACTIONS (3)
  - SINUSITIS [None]
  - GASTRIC ULCER [None]
  - INJECTION SITE REACTION [None]
